FAERS Safety Report 6763907-6 (Version None)
Quarter: 2010Q2

REPORT INFORMATION
  Report Type: 
  Country: None (occurrence: None)
  Receive Date: 20100608
  Receipt Date: 20100526
  Transmission Date: 20101027
  Serious: No
  Sender: FDA-Public Use
  Company Number: LIT-10-0033

PATIENT

DRUGS (1)
  1. MEGESTROL ACETATE ORAL SUSPENSION (MGP) [Suspect]
     Indication: NEOPLASM MALIGNANT
     Dosage: 320MG DAILY, 047

REACTIONS (12)
  - DIARRHOEA [None]
  - DRUG TOXICITY [None]
  - EATING DISORDER [None]
  - FATIGUE [None]
  - GALACTORRHOEA [None]
  - GYNAECOMASTIA [None]
  - HOT FLUSH [None]
  - HYPERTRIGLYCERIDAEMIA [None]
  - LIBIDO DISORDER [None]
  - OEDEMA [None]
  - PHLEBITIS [None]
  - VENOOCCLUSIVE LIVER DISEASE [None]
